FAERS Safety Report 6695842-6 (Version None)
Quarter: 2010Q2

REPORT INFORMATION
  Report Type: 
  Country: None (occurrence: None)
  Receive Date: 20100426
  Receipt Date: 20100415
  Transmission Date: 20101027
  Serious: Yes (Other)
  Sender: FDA-Public Use
  Company Number: FR-JNJFOC-20100405491

PATIENT
  Age: 3 Year
  Sex: Male

DRUGS (2)
  1. REMICADE [Suspect]
     Indication: CROHN'S DISEASE
     Route: 042
  2. REMICADE [Suspect]
     Dosage: 2 INFUSIONS TOTAL
     Route: 042

REACTIONS (3)
  - CARDIOGENIC SHOCK [None]
  - DIARRHOEA [None]
  - INFUSION RELATED REACTION [None]
